FAERS Safety Report 13239790 (Version 4)
Quarter: 2017Q2

REPORT INFORMATION
  Report Type: Spontaneous
  Country: US (occurrence: US)
  Receive Date: 20170216
  Receipt Date: 20170403
  Transmission Date: 20170830
  Serious: No
  Sender: FDA-Public Use
  Company Number: US-PFIZER INC-2017061631

PATIENT
  Age: 51 Year
  Sex: Male
  Weight: 94.33 kg

DRUGS (3)
  1. LEVOTHYROXINE. [Concomitant]
     Active Substance: LEVOTHYROXINE
     Dosage: UNK
  2. SUTENT [Suspect]
     Active Substance: SUNITINIB MALATE
     Indication: RENAL CANCER METASTATIC
     Dosage: 50 MG, CYCLIC (28 DAYS ON/14 DAYS OFF)
     Dates: start: 20161208
  3. MAGNESIUM [Concomitant]
     Active Substance: MAGNESIUM
     Dosage: UNK

REACTIONS (13)
  - Influenza [Unknown]
  - Arthritis [Unknown]
  - Abdominal pain [Recovering/Resolving]
  - Dry skin [Recovering/Resolving]
  - Back pain [Recovering/Resolving]
  - Liver function test increased [Recovered/Resolved]
  - Rash [Recovering/Resolving]
  - Vomiting [Recovering/Resolving]
  - Abdominal distension [Unknown]
  - Fatigue [Unknown]
  - Diarrhoea [Recovering/Resolving]
  - Blood magnesium decreased [Unknown]
  - Aspartate aminotransferase increased [Unknown]
